FAERS Safety Report 15314546 (Version 1)
Quarter: 2018Q3

REPORT INFORMATION
  Report Type: Spontaneous
  Country: US (occurrence: US)
  Receive Date: 20180824
  Receipt Date: 20180824
  Transmission Date: 20181010
  Serious: No
  Sender: FDA-Public Use
  Company Number: US-B.I. PHARMACEUTICALS,INC./RIDGEFIELD-2018-BI-041497

PATIENT
  Sex: Male

DRUGS (6)
  1. OFEV [Suspect]
     Active Substance: NINTEDANIB
     Indication: IDIOPATHIC PULMONARY FIBROSIS
     Dosage: STRENGTH: 150 MG; FORMULATION: CAPSULE  ADMINISTRATION CORRECT? YES  ACTION TAKEN: DRUG REDUCED
     Route: 048
     Dates: start: 20180412, end: 20180703
  2. FOSAMAX [Concomitant]
     Active Substance: ALENDRONATE SODIUM
     Indication: OSTEOPOROSIS
     Dosage: EVERY 2 WEEKS;  FORM STRENGTH: 75MG; FORMULATION: TABLET
     Route: 048
  3. LEVOTHYROXINE. [Concomitant]
     Active Substance: LEVOTHYROXINE
     Indication: THYROID DISORDER
     Dosage: ONCE DAILY;  FORM STRENGTH: 50MCG; FORMULATION: TABLET
     Route: 048
  4. OFEV [Suspect]
     Active Substance: NINTEDANIB
     Dosage: STRENGTH: 100MG;FORMULATION: CAPSULE  ADMINISTRATION CORRECT? YES ACTION TAKEN: DOSE NOT CHANGED
     Route: 048
     Dates: start: 20180703
  5. MULTIVITAMIN [Concomitant]
     Active Substance: VITAMINS
     Indication: VITAMIN SUPPLEMENTATION
     Dosage: FORMULATION: TABLET;
     Route: 048
  6. CALCIUM [Concomitant]
     Active Substance: CALCIUM
     Indication: PRODUCT USED FOR UNKNOWN INDICATION
     Dosage: FORMULATION: TABLET;
     Route: 048

REACTIONS (6)
  - Diarrhoea [Recovered/Resolved]
  - Abdominal discomfort [Recovered/Resolved]
  - Cough [Not Recovered/Not Resolved]
  - Musculoskeletal chest pain [Not Recovered/Not Resolved]
  - Flatulence [Unknown]
  - Abdominal pain upper [Not Recovered/Not Resolved]

NARRATIVE: CASE EVENT DATE: 2018
